FAERS Safety Report 10515493 (Version 1)
Quarter: 2014Q3

REPORT INFORMATION
  Report Type: Spontaneous
  Country: US (occurrence: None)
  Receive Date: 20140926
  Receipt Date: 20140926
  Transmission Date: 20150326
  Serious: No
  Sender: FDA-Public Use
  Company Number: 1000070033

PATIENT
  Sex: Female

DRUGS (1)
  1. LINZESS [Suspect]
     Active Substance: LINACLOTIDE
     Dosage: 290 MCG (FREQUENCE UNKNOWN) (290 MCG, 290 MCG (FREQUENCY UNKNOWN))

REACTIONS (2)
  - Abdominal pain upper [None]
  - Constipation [None]
